FAERS Safety Report 8444123-9 (Version None)
Quarter: 2012Q2

REPORT INFORMATION
  Report Type: 
  Country: None (occurrence: None)
  Receive Date: 20120618
  Receipt Date: 20120608
  Transmission Date: 20120825
  Serious: Yes (Death, Life-Threatening, Hospitalization)
  Sender: FDA-Public Use
  Company Number: FR-SANOFI-AVENTIS-2012SA012079

PATIENT
  Age: 66 Year
  Sex: Male

DRUGS (12)
  1. PROSCAR [Suspect]
     Route: 048
     Dates: start: 20120110, end: 20120118
  2. TRACLEER [Suspect]
     Route: 048
     Dates: start: 20111129, end: 20120120
  3. CORONARY VASODILATORS [Concomitant]
  4. NEXIUM [Concomitant]
     Route: 048
  5. SILDENAFIL CITRATE [Suspect]
     Route: 048
     Dates: start: 20111123, end: 20111129
  6. ALFUZOSIN HCL [Suspect]
     Route: 048
     Dates: start: 20111208, end: 20120118
  7. PAROXETINE HCL [Suspect]
     Route: 048
     Dates: start: 20120112, end: 20120118
  8. NORFLOXACIN [Suspect]
     Route: 031
     Dates: start: 20111213, end: 20120118
  9. SILDENAFIL CITRATE [Suspect]
     Route: 048
     Dates: start: 20120115, end: 20120120
  10. IMOVANE [Suspect]
     Route: 048
     Dates: start: 20111201, end: 20120118
  11. XANAX [Suspect]
     Route: 048
     Dates: start: 20120107, end: 20120118
  12. PREDNISOLONE [Suspect]
     Route: 048
     Dates: start: 20111201, end: 20120120

REACTIONS (1)
  - TOXIC EPIDERMAL NECROLYSIS [None]
